FAERS Safety Report 10154870 (Version 1)
Quarter: 2014Q2

REPORT INFORMATION
  Report Type: Spontaneous
  Country: US (occurrence: US)
  Receive Date: 20140506
  Receipt Date: 20140506
  Transmission Date: 20141212
  Serious: Yes (Other)
  Sender: FDA-Public Use
  Company Number: US-AMGEN-USASP2014032139

PATIENT
  Age: 61 Year
  Sex: Female

DRUGS (3)
  1. NEULASTA [Suspect]
     Indication: CHEMOTHERAPY
     Dosage: UNK
     Route: 065
     Dates: start: 2014
  2. CYTOXAN [Concomitant]
     Indication: INTRADUCTAL PROLIFERATIVE BREAST LESION
     Dosage: UNK UNK, Q2WK
     Dates: start: 201404
  3. ADRIAMYCIN                         /00330901/ [Concomitant]
     Indication: INTRADUCTAL PROLIFERATIVE BREAST LESION
     Dosage: UNK UNK, EVERY OTHER WEEK
     Dates: start: 201404

REACTIONS (2)
  - Pancreatitis acute [Unknown]
  - White blood cell count decreased [Unknown]
